FAERS Safety Report 19932490 (Version 1)
Quarter: 2021Q4

REPORT INFORMATION
  Report Type: Spontaneous
  Country: US (occurrence: US)
  Receive Date: 20211007
  Receipt Date: 20211007
  Transmission Date: 20220303
  Serious: Yes (Other)
  Sender: FDA-Public Use
  Company Number: None

PATIENT
  Age: 39 Year
  Sex: Female

DRUGS (1)
  1. LAMOTRIGINE [Suspect]
     Active Substance: LAMOTRIGINE
     Indication: Bipolar disorder
     Dates: start: 20110501, end: 20210730

REACTIONS (4)
  - Drug ineffective [None]
  - Condition aggravated [None]
  - Anger [None]
  - Anger [None]

NARRATIVE: CASE EVENT DATE: 20110501
